FAERS Safety Report 20476322 (Version 1)
Quarter: 2022Q1

REPORT INFORMATION
  Report Type: Spontaneous
  Country: ES (occurrence: None)
  Receive Date: 20220215
  Receipt Date: 20220215
  Transmission Date: 20220423
  Serious: Yes (Other)
  Sender: FDA-Public Use
  Company Number: 2021A696380

PATIENT
  Age: 60 Year
  Sex: Female

DRUGS (7)
  1. FULVESTRANT [Suspect]
     Active Substance: FULVESTRANT
     Indication: Hormone receptor positive HER2 negative breast cancer
     Dosage: UNK, MONTHLY (1/M)
     Route: 030
     Dates: start: 202102
  2. ABEMACICLIB [Suspect]
     Active Substance: ABEMACICLIB
     Indication: Hormone receptor positive HER2 negative breast cancer
     Dosage: 100 MG
     Route: 065
  3. ABEMACICLIB [Suspect]
     Active Substance: ABEMACICLIB
     Indication: Hormone receptor positive HER2 negative breast cancer
     Dosage: 50 MG, UNKNOWN50.0MG UNKNOWN
     Route: 065
     Dates: start: 20210823
  4. ABEMACICLIB [Suspect]
     Active Substance: ABEMACICLIB
     Indication: Hormone receptor positive HER2 negative breast cancer
     Dosage: 150 MG, UNKNOWN150.0MG UNKNOWN
     Route: 065
     Dates: start: 202009
  5. DEXKETOPROFEN TROMETAMOL [Concomitant]
     Active Substance: DEXKETOPROFEN TROMETAMOL
     Indication: Headache
     Dosage: UNK, UNKNOWN
     Route: 065
  6. PALEXIA [Concomitant]
     Active Substance: TAPENTADOL HYDROCHLORIDE
     Indication: Headache
     Dosage: UNK, UNKNOWN
     Route: 065
  7. RESCUE [Concomitant]
     Indication: Headache
     Dosage: UNK, UNKNOWN
     Route: 065

REACTIONS (11)
  - Malignant neoplasm progression [Not Recovered/Not Resolved]
  - Poisoning [Recovered/Resolved]
  - Dizziness [Recovering/Resolving]
  - Pain [Recovering/Resolving]
  - Vomiting [Recovering/Resolving]
  - Diarrhoea [Recovered/Resolved]
  - Fatigue [Recovering/Resolving]
  - Hypersensitivity [Recovered/Resolved]
  - Abdominal pain upper [Recovering/Resolving]
  - Computerised tomogram liver abnormal [Recovering/Resolving]
  - Headache [Not Recovered/Not Resolved]

NARRATIVE: CASE EVENT DATE: 20210201
